FAERS Safety Report 21060830 (Version 1)
Quarter: 2022Q3

REPORT INFORMATION
  Report Type: Spontaneous
  Country: FR (occurrence: FR)
  Receive Date: 20220709
  Receipt Date: 20220709
  Transmission Date: 20221026
  Serious: Yes (Congenital Anomaly)
  Sender: FDA-Public Use
  Company Number: None

PATIENT
  Age: 36 Year
  Sex: Female
  Weight: 114 kg

DRUGS (4)
  1. VALSARTAN [Suspect]
     Active Substance: VALSARTAN
     Indication: Hypertension
     Route: 048
     Dates: start: 20220115, end: 20220616
  2. ASCORBIC ACID\FERROUS SULFATE [Concomitant]
     Active Substance: ASCORBIC ACID\FERROUS SULFATE
     Indication: Product used for unknown indication
  3. ASPEGIC INFANTS [Concomitant]
     Indication: Product used for unknown indication
     Dosage: ASPEGIC INFANTS 100 MG, POWDER FOR ORAL SOLUTION IN SACHET-DOSE
  4. OMEPRAZOLE CRISTERS [Concomitant]
     Indication: Product used for unknown indication
     Dosage: STRENGTH: 20 MG,

REACTIONS (1)
  - Oligohydramnios [Not Recovered/Not Resolved]

NARRATIVE: CASE EVENT DATE: 20220615
